FAERS Safety Report 4371988-2 (Version None)
Quarter: 2004Q2

REPORT INFORMATION
  Report Type: 
  Country: None (occurrence: None)
  Receive Date: 20040602
  Receipt Date: 20040518
  Transmission Date: 20050107
  Serious: Yes (Other)
  Sender: FDA-Public Use
  Company Number: S04-USA-02765-01

PATIENT
  Age: 44 Year
  Sex: Female

DRUGS (5)
  1. LEXAPRO [Suspect]
     Indication: DEPRESSION
     Dosage: 10 MG QD PO
     Route: 048
     Dates: start: 20040413, end: 20040424
  2. DITROPAN [Concomitant]
  3. BUSPAR [Concomitant]
  4. THYROID TAB [Concomitant]
  5. EFFEXOR [Concomitant]

REACTIONS (4)
  - ABDOMINAL DISTENSION [None]
  - FEELING ABNORMAL [None]
  - HEPATITIS [None]
  - OEDEMA PERIPHERAL [None]
